FAERS Safety Report 8833224 (Version 1)
Quarter: 2012Q4

REPORT INFORMATION
  Report Type: 
  Country: JP (occurrence: JP)
  Receive Date: 20121010
  Receipt Date: 20121010
  Transmission Date: 20130627
  Serious: Yes (Other)
  Sender: FDA-Public Use
  Company Number: PHHY2012JP088978

PATIENT

DRUGS (1)
  1. ZOMETA [Suspect]
     Route: 041

REACTIONS (3)
  - Fall [Unknown]
  - Fracture [Unknown]
  - Pain [Unknown]
